FAERS Safety Report 5116994-5 (Version None)
Quarter: 2006Q3

REPORT INFORMATION
  Report Type: 
  Country: None (occurrence: None)
  Receive Date: 20060928
  Receipt Date: 20060815
  Transmission Date: 20061208
  Serious: Yes (Hospitalization)
  Sender: FDA-Public Use
  Company Number: US-MERCK-0608USA03635

PATIENT
  Age: 82 Year
  Sex: Female
  Weight: 74 kg

DRUGS (8)
  1. ZOCOR [Suspect]
     Route: 048
  2. ZOCOR [Suspect]
     Route: 048
     Dates: start: 20060725, end: 20060725
  3. ARICEPT [Suspect]
     Indication: DEMENTIA
     Route: 048
     Dates: start: 20060717
  4. ARICEPT [Suspect]
     Route: 048
     Dates: start: 20060725, end: 20060725
  5. AMIODARONE [Concomitant]
     Route: 065
  6. COUMADIN [Concomitant]
     Route: 065
  7. FOSAMAX [Concomitant]
     Route: 065
  8. CALCIUM (UNSPECIFIED) [Concomitant]
     Route: 065

REACTIONS (5)
  - DEHYDRATION [None]
  - DIARRHOEA [None]
  - NAUSEA [None]
  - OVERDOSE [None]
  - VOMITING [None]
